FAERS Safety Report 5453609-0 (Version None)
Quarter: 2007Q3

REPORT INFORMATION
  Report Type: 
  Country: None (occurrence: None)
  Receive Date: 20070917
  Receipt Date: 20070907
  Transmission Date: 20080115
  Serious: Yes (Other)
  Sender: FDA-Public Use
  Company Number: US-JNJFOC-20070901874

PATIENT
  Sex: Female
  Weight: 81.65 kg

DRUGS (22)
  1. DURAGESIC-100 [Suspect]
     Indication: PAIN
     Route: 062
  2. FENTANYL TRANSDERMAL SYSTEM [Suspect]
     Indication: PAIN
     Route: 062
  3. ACTOS [Concomitant]
     Indication: DIABETES MELLITUS
     Route: 048
  4. ATIVAN [Concomitant]
     Indication: MENIERE'S DISEASE
     Route: 048
  5. COLAZAL [Concomitant]
     Indication: PROCTITIS ULCERATIVE
     Dosage: 2-3 TIMES PER DAY
     Route: 048
  6. ESTRADIOL [Concomitant]
     Indication: HORMONE REPLACEMENT THERAPY
     Route: 048
  7. LANTUS [Concomitant]
     Indication: DIABETES MELLITUS
     Route: 058
  8. HUMALOG [Concomitant]
     Indication: DIABETES MELLITUS
     Route: 058
  9. LEVOXYL [Concomitant]
     Indication: THYROID DISORDER
     Route: 048
  10. LISINOPRIL [Concomitant]
     Indication: MINERAL SUPPLEMENTATION
     Route: 048
  11. LOPID [Concomitant]
     Indication: BLOOD CHOLESTEROL
     Route: 048
  12. MAXZIDE [Concomitant]
     Indication: MENIERE'S DISEASE
     Route: 048
  13. PAXIL [Concomitant]
     Indication: SLEEP DISORDER
     Route: 048
  14. PRILOSEC [Concomitant]
     Indication: PANCREATITIS
     Route: 048
  15. IMURAN [Concomitant]
     Indication: PROCTITIS ULCERATIVE
     Route: 048
  16. PREDNISONE [Concomitant]
     Indication: PROCTITIS ULCERATIVE
     Route: 048
  17. ZYRTEC [Concomitant]
     Indication: MULTIPLE ALLERGIES
     Route: 048
  18. SIMVASTATIN [Concomitant]
     Indication: BLOOD TRIGLYCERIDES
     Route: 048
  19. FISH OIL [Concomitant]
     Indication: BLOOD CHOLESTEROL
     Route: 048
  20. FISH OIL [Concomitant]
     Indication: BLOOD TRIGLYCERIDES
     Route: 048
  21. CENTRUM SILVER [Concomitant]
     Indication: MEDICAL DIET
     Route: 048
  22. ASPIRIN [Concomitant]
     Indication: CEREBROVASCULAR ACCIDENT
     Route: 048

REACTIONS (4)
  - DRUG ADMINISTERED AT INAPPROPRIATE SITE [None]
  - DRUG INEFFECTIVE [None]
  - INAPPROPRIATE SCHEDULE OF DRUG ADMINISTRATION [None]
  - NIPPLE EXUDATE BLOODY [None]
